FAERS Safety Report 9365734 (Version 1)
Quarter: 2013Q2

REPORT INFORMATION
  Report Type: Spontaneous
  Country: US (occurrence: None)
  Receive Date: 20130624
  Receipt Date: 20130624
  Transmission Date: 20140414
  Serious: Yes (Life-Threatening)
  Sender: FDA-Public Use
  Company Number: None

PATIENT
  Age: 81 Year
  Sex: Male
  Weight: 77.6 kg

DRUGS (2)
  1. DIGOXIN [Suspect]
     Indication: CARDIAC FAILURE CONGESTIVE
     Dosage: 0.125 MG EVERY DAY PO?
     Route: 048
     Dates: start: 20050503, end: 20130508
  2. DIGOXIN [Suspect]
     Indication: CELLULITIS
     Dosage: 0.125 MG EVERY DAY PO?
     Route: 048
     Dates: start: 20050503, end: 20130508

REACTIONS (8)
  - Dyspnoea [None]
  - Renal failure acute [None]
  - Blood potassium increased [None]
  - Dialysis [None]
  - Toxicity to various agents [None]
  - Localised infection [None]
  - Staphylococcal infection [None]
  - Nephropathy toxic [None]
